FAERS Safety Report 5152070-3 (Version None)
Quarter: 2006Q4

REPORT INFORMATION
  Report Type: 
  Country: None (occurrence: None)
  Receive Date: 20061116
  Receipt Date: 20061108
  Transmission Date: 20070319
  Serious: Yes (Other)
  Sender: FDA-Public Use
  Company Number: CH-JNJFOC-20061102032

PATIENT
  Sex: Female

DRUGS (1)
  1. REMICADE [Suspect]
     Indication: DRUG USE FOR UNKNOWN INDICATION
     Dosage: 5 INFUSIONS
     Route: 042

REACTIONS (6)
  - ANGINA PECTORIS [None]
  - ARTHRALGIA [None]
  - DIARRHOEA [None]
  - DYSPNOEA [None]
  - PALPITATIONS [None]
  - VOMITING [None]
